FAERS Safety Report 8444181-1 (Version None)
Quarter: 2012Q2

REPORT INFORMATION
  Report Type: 
  Country: None (occurrence: None)
  Receive Date: 20120618
  Receipt Date: 20120516
  Transmission Date: 20120825
  Serious: No
  Sender: FDA-Public Use
  Company Number: US-BAYER-2012-050748

PATIENT

DRUGS (2)
  1. ALEVE (CAPLET) [Suspect]
     Indication: NECK PAIN
     Dosage: 2 DF, UNK
     Route: 048
  2. ALEVE (CAPLET) [Suspect]
     Indication: PAIN IN JAW

REACTIONS (2)
  - PAIN IN JAW [None]
  - NECK PAIN [None]
